FAERS Safety Report 20225761 (Version 2)
Quarter: 2022Q1

REPORT INFORMATION
  Report Type: Spontaneous
  Country: PK (occurrence: PK)
  Receive Date: 20211224
  Receipt Date: 20220103
  Transmission Date: 20220423
  Serious: Yes (Other)
  Sender: FDA-Public Use
  Company Number: PK-NOVOPROD-878339

PATIENT

DRUGS (1)
  1. INSULIN ASPART [Suspect]
     Active Substance: INSULIN ASPART
     Indication: Diabetes mellitus
     Dosage: 28 IU, QD
     Route: 058
     Dates: start: 20210827

REACTIONS (1)
  - Cyst [Not Recovered/Not Resolved]

NARRATIVE: CASE EVENT DATE: 20211201
